FAERS Safety Report 20421927 (Version 2)
Quarter: 2022Q1

REPORT INFORMATION
  Report Type: Spontaneous
  Country: IN (occurrence: IN)
  Receive Date: 20220203
  Receipt Date: 20220310
  Transmission Date: 20220423
  Serious: Yes (Other)
  Sender: FDA-Public Use
  Company Number: IN-MLMSERVICE-20220120-3326650-1

PATIENT
  Age: 24 Year
  Sex: Female

DRUGS (3)
  1. FLUOROURACIL [Suspect]
     Active Substance: FLUOROURACIL
     Indication: Vitiligo
     Route: 061
  2. TACROLIMUS [Concomitant]
     Active Substance: TACROLIMUS
     Indication: Vitiligo
     Route: 061
  3. PHOTOSENSITIZER [Concomitant]
     Indication: Vitiligo

REACTIONS (1)
  - Aplastic anaemia [Recovering/Resolving]
